FAERS Safety Report 8326595-3 (Version None)
Quarter: 2012Q2

REPORT INFORMATION
  Report Type: 
  Country: None (occurrence: None)
  Receive Date: 20120501
  Receipt Date: 20090814
  Transmission Date: 20120825
  Serious: No
  Sender: FDA-Public Use
  Company Number: US-TEVA-2009009643

PATIENT
  Sex: Female
  Weight: 72.64 kg

DRUGS (6)
  1. ASPIRIN [Concomitant]
     Dates: start: 20070101
  2. ZETIA [Concomitant]
     Dates: start: 20090301
  3. NUVIGIL [Suspect]
     Indication: MULTIPLE SCLEROSIS
     Route: 048
     Dates: start: 20090701
  4. DOXYCYCLINE [Concomitant]
     Dates: start: 20070101
  5. ZYRTEC [Concomitant]
     Dates: start: 20010101
  6. AVALIDE [Concomitant]
     Dates: start: 20060101

REACTIONS (2)
  - PALPITATIONS [None]
  - BLOOD PRESSURE INCREASED [None]
